FAERS Safety Report 19023747 (Version 1)
Quarter: 2021Q1

REPORT INFORMATION
  Report Type: Spontaneous
  Country: US (occurrence: US)
  Receive Date: 20210318
  Receipt Date: 20210318
  Transmission Date: 20210420
  Serious: No
  Sender: FDA-Public Use
  Company Number: US-AMGEN-USASP2021039188

PATIENT
  Age: 70 Year
  Sex: Female

DRUGS (2)
  1. REPATHA [Suspect]
     Active Substance: EVOLOCUMAB
     Indication: BLOOD CHOLESTEROL INCREASED
     Dosage: 140 MILLIGRAM
     Route: 065
     Dates: start: 202012
  2. TRULICITY [Concomitant]
     Active Substance: DULAGLUTIDE
     Dosage: UNK

REACTIONS (6)
  - Incorrect disposal of product [Unknown]
  - Arthralgia [Unknown]
  - Pain in extremity [Unknown]
  - Food craving [Unknown]
  - Wrong technique in product usage process [Unknown]
  - Hot flush [Unknown]

NARRATIVE: CASE EVENT DATE: 20210310
